FAERS Safety Report 8761098 (Version 1)
Quarter: 2012Q4

REPORT INFORMATION
  Report Type: 
  Country: DE (occurrence: DE)
  Receive Date: 20120830
  Receipt Date: 20120830
  Transmission Date: 20130627
  Serious: Yes (Hospitalization)
  Sender: FDA-Public Use
  Company Number: DE-MYLANLABS-2012S1016839

PATIENT
  Age: 80 Year
  Sex: Male
  Weight: 97 kg

DRUGS (2)
  1. CLOPIDOGREL [Suspect]
     Indication: DRUG INTOLERANCE
     Dosage: daily dose: 75 Mg millgram(s) every Days
     Dates: start: 20120220, end: 20120228
  2. CORINFAR [Concomitant]
     Indication: DRUG INTOLERANCE
     Dosage: daily dose: 20 Mg millgram(s) every Days
     Dates: start: 2009, end: 20120228

REACTIONS (5)
  - Transient ischaemic attack [Unknown]
  - Dizziness [Unknown]
  - Visual impairment [Unknown]
  - Vomiting [Unknown]
  - Facial paresis [Unknown]
